FAERS Safety Report 13949822 (Version 1)
Quarter: 2017Q3

REPORT INFORMATION
  Report Type: Spontaneous
  Country: US (occurrence: US)
  Receive Date: 20170908
  Receipt Date: 20170908
  Transmission Date: 20171128
  Serious: No
  Sender: FDA-Public Use
  Company Number: US-ROCHE-1147639

PATIENT
  Sex: Male
  Weight: 83.99 kg

DRUGS (8)
  1. ADRIAMYCIN [Concomitant]
     Active Substance: DOXORUBICIN HYDROCHLORIDE
     Route: 042
  2. DECADRON [Concomitant]
     Active Substance: DEXAMETHASONE
     Route: 030
  3. CYTOXAN [Concomitant]
     Active Substance: CYCLOPHOSPHAMIDE
     Route: 041
  4. PROCRIT [Concomitant]
     Active Substance: ERYTHROPOIETIN
     Route: 058
  5. EPOGEN [Concomitant]
     Active Substance: ERYTHROPOIETIN
     Route: 058
  6. ZOFRAN [Concomitant]
     Active Substance: ONDANSETRON HYDROCHLORIDE
     Route: 041
  7. RITUXAN [Suspect]
     Active Substance: RITUXIMAB
     Indication: LYMPHOCYTIC LEUKAEMIA
     Route: 065
  8. LEVAQUIN [Concomitant]
     Active Substance: LEVOFLOXACIN
     Route: 065

REACTIONS (15)
  - Epistaxis [Unknown]
  - Fatigue [Unknown]
  - Palpitations [Unknown]
  - Insomnia [Unknown]
  - Hyperhidrosis [Unknown]
  - Cough [Unknown]
  - Nausea [Unknown]
  - Vertigo [Unknown]
  - Decreased appetite [Unknown]
  - Therapy non-responder [Unknown]
  - Arthritis [Unknown]
  - Vomiting [Unknown]
  - Muscular weakness [Unknown]
  - Oral pain [Unknown]
  - Weight decreased [Unknown]
